FAERS Safety Report 25556577 (Version 1)
Quarter: 2025Q3

REPORT INFORMATION
  Report Type: Spontaneous
  Country: EU (occurrence: EU)
  Receive Date: 20250715
  Receipt Date: 20250715
  Transmission Date: 20251020
  Serious: Yes (Other)
  Sender: MYLAN
  Company Number: EU-SANDOZ-SDZ2025SI043923

PATIENT
  Age: 53 Year
  Sex: Male
  Weight: 85 kg

DRUGS (36)
  1. ATORVASTATIN [Suspect]
     Active Substance: ATORVASTATIN
     Indication: Product used for unknown indication
  2. ATORVASTATIN [Suspect]
     Active Substance: ATORVASTATIN
     Route: 065
  3. ATORVASTATIN [Suspect]
     Active Substance: ATORVASTATIN
     Route: 065
  4. ATORVASTATIN [Suspect]
     Active Substance: ATORVASTATIN
  5. FUROSEMIDE [Suspect]
     Active Substance: FUROSEMIDE
     Indication: Product used for unknown indication
  6. FUROSEMIDE [Suspect]
     Active Substance: FUROSEMIDE
     Route: 065
  7. FUROSEMIDE [Suspect]
     Active Substance: FUROSEMIDE
     Route: 065
  8. FUROSEMIDE [Suspect]
     Active Substance: FUROSEMIDE
  9. NEBIVOLOL [Suspect]
     Active Substance: NEBIVOLOL
     Indication: Product used for unknown indication
  10. NEBIVOLOL [Suspect]
     Active Substance: NEBIVOLOL
     Route: 065
  11. NEBIVOLOL [Suspect]
     Active Substance: NEBIVOLOL
     Route: 065
  12. NEBIVOLOL [Suspect]
     Active Substance: NEBIVOLOL
  13. SODIUM BICARBONATE [Suspect]
     Active Substance: SODIUM BICARBONATE
     Indication: Product used for unknown indication
     Dosage: 3 GRAM, QD (1 GRAM, TID)
  14. SODIUM BICARBONATE [Suspect]
     Active Substance: SODIUM BICARBONATE
     Dosage: 3 GRAM, QD (1 GRAM, TID)
     Route: 065
  15. SODIUM BICARBONATE [Suspect]
     Active Substance: SODIUM BICARBONATE
     Dosage: 3 GRAM, QD (1 GRAM, TID)
     Route: 065
  16. SODIUM BICARBONATE [Suspect]
     Active Substance: SODIUM BICARBONATE
     Dosage: 3 GRAM, QD (1 GRAM, TID)
  17. CALCIUM CARBONATE [Suspect]
     Active Substance: CALCIUM CARBONATE
     Indication: Product used for unknown indication
     Dosage: 3 GRAM, QD (1 GRAM, TID)
  18. CALCIUM CARBONATE [Suspect]
     Active Substance: CALCIUM CARBONATE
     Dosage: 3 GRAM, QD (1 GRAM, TID)
     Route: 065
  19. CALCIUM CARBONATE [Suspect]
     Active Substance: CALCIUM CARBONATE
     Dosage: 3 GRAM, QD (1 GRAM, TID)
     Route: 065
  20. CALCIUM CARBONATE [Suspect]
     Active Substance: CALCIUM CARBONATE
     Dosage: 3 GRAM, QD (1 GRAM, TID)
  21. SEVELAMER [Suspect]
     Active Substance: SEVELAMER
     Indication: Product used for unknown indication
     Dosage: 2400 MILLIGRAM, QD (800 MILLIGRAM, TID)
  22. SEVELAMER [Suspect]
     Active Substance: SEVELAMER
     Dosage: 2400 MILLIGRAM, QD (800 MILLIGRAM, TID)
     Route: 065
  23. SEVELAMER [Suspect]
     Active Substance: SEVELAMER
     Dosage: 2400 MILLIGRAM, QD (800 MILLIGRAM, TID)
     Route: 065
  24. SEVELAMER [Suspect]
     Active Substance: SEVELAMER
     Dosage: 2400 MILLIGRAM, QD (800 MILLIGRAM, TID)
  25. CALCITRIOL [Suspect]
     Active Substance: CALCITRIOL
     Indication: Product used for unknown indication
  26. CALCITRIOL [Suspect]
     Active Substance: CALCITRIOL
     Route: 065
  27. CALCITRIOL [Suspect]
     Active Substance: CALCITRIOL
     Route: 065
  28. CALCITRIOL [Suspect]
     Active Substance: CALCITRIOL
  29. METHOXY POLYETHYLENE GLYCOL-EPOETIN BETA [Suspect]
     Active Substance: METHOXY POLYETHYLENE GLYCOL-EPOETIN BETA
     Indication: Product used for unknown indication
     Dosage: 100 MICROGRAM, MONTHLY
  30. METHOXY POLYETHYLENE GLYCOL-EPOETIN BETA [Suspect]
     Active Substance: METHOXY POLYETHYLENE GLYCOL-EPOETIN BETA
     Dosage: 100 MICROGRAM, MONTHLY
     Route: 065
  31. METHOXY POLYETHYLENE GLYCOL-EPOETIN BETA [Suspect]
     Active Substance: METHOXY POLYETHYLENE GLYCOL-EPOETIN BETA
     Dosage: 100 MICROGRAM, MONTHLY
     Route: 065
  32. METHOXY POLYETHYLENE GLYCOL-EPOETIN BETA [Suspect]
     Active Substance: METHOXY POLYETHYLENE GLYCOL-EPOETIN BETA
     Dosage: 100 MICROGRAM, MONTHLY
  33. AMLODIPINE\ATORVASTATIN\PERINDOPRIL [Suspect]
     Active Substance: AMLODIPINE\ATORVASTATIN\PERINDOPRIL
     Indication: Product used for unknown indication
  34. AMLODIPINE\ATORVASTATIN\PERINDOPRIL [Suspect]
     Active Substance: AMLODIPINE\ATORVASTATIN\PERINDOPRIL
     Route: 065
  35. AMLODIPINE\ATORVASTATIN\PERINDOPRIL [Suspect]
     Active Substance: AMLODIPINE\ATORVASTATIN\PERINDOPRIL
     Route: 065
  36. AMLODIPINE\ATORVASTATIN\PERINDOPRIL [Suspect]
     Active Substance: AMLODIPINE\ATORVASTATIN\PERINDOPRIL

REACTIONS (2)
  - Nephropathy [Unknown]
  - Condition aggravated [Unknown]
